FAERS Safety Report 19008571 (Version 11)
Quarter: 2022Q2

REPORT INFORMATION
  Report Type: Report from Study
  Country: DE (occurrence: DE)
  Receive Date: 20210315
  Receipt Date: 20220518
  Transmission Date: 20220720
  Serious: Yes (Hospitalization, Other)
  Sender: FDA-Public Use
  Company Number: DE-TAKEDA-DE202029266

PATIENT
  Age: 15 Year
  Sex: Female
  Weight: 43 kg

DRUGS (23)
  1. VELAGLUCERASE ALFA [Suspect]
     Active Substance: VELAGLUCERASE ALFA
     Indication: Gaucher^s disease
     Dosage: 2600 MILLIGRAM, Q2WEEKS
     Route: 042
     Dates: start: 201703
  2. VELAGLUCERASE ALFA [Suspect]
     Active Substance: VELAGLUCERASE ALFA
     Dosage: 2400 INTERNATIONAL UNIT
     Route: 042
     Dates: start: 201703
  3. VELAGLUCERASE ALFA [Suspect]
     Active Substance: VELAGLUCERASE ALFA
     Dosage: 2400 INTERNATIONAL UNIT
     Route: 042
     Dates: start: 201703
  4. VELAGLUCERASE ALFA [Suspect]
     Active Substance: VELAGLUCERASE ALFA
     Dosage: 2400 INTERNATIONAL UNIT, Q2WEEKS
     Route: 042
     Dates: start: 201703
  5. VELAGLUCERASE ALFA [Suspect]
     Active Substance: VELAGLUCERASE ALFA
     Dosage: 2600 MILLIGRAM, Q2WEEKS
     Route: 042
     Dates: start: 201703
  6. VELAGLUCERASE ALFA [Suspect]
     Active Substance: VELAGLUCERASE ALFA
     Dosage: 2400 MILLIGRAM, Q2WEEKS
     Route: 042
     Dates: start: 201703
  7. VELAGLUCERASE ALFA [Suspect]
     Active Substance: VELAGLUCERASE ALFA
     Dosage: 2400 INTERNATIONAL UNIT, Q2WEEKS
     Route: 042
     Dates: start: 201703
  8. VELAGLUCERASE ALFA [Suspect]
     Active Substance: VELAGLUCERASE ALFA
     Dosage: 2400 INTERNATIONAL UNIT
     Route: 042
     Dates: start: 201703
  9. VELAGLUCERASE ALFA [Suspect]
     Active Substance: VELAGLUCERASE ALFA
     Dosage: 2600 MILLIGRAM, Q2WEEKS
     Route: 042
     Dates: start: 20200819
  10. VELAGLUCERASE ALFA [Suspect]
     Active Substance: VELAGLUCERASE ALFA
     Dosage: 2600 MILLIGRAM, Q2WEEKS
     Route: 042
     Dates: start: 20200819, end: 20200819
  11. VELAGLUCERASE ALFA [Suspect]
     Active Substance: VELAGLUCERASE ALFA
     Dosage: 2400 MILLIGRAM, Q2WEEKS
     Route: 042
     Dates: start: 20201106, end: 20201106
  12. VELAGLUCERASE ALFA [Suspect]
     Active Substance: VELAGLUCERASE ALFA
     Dosage: 2600 MILLIGRAM, Q2WEEKS
     Route: 042
     Dates: start: 20201009, end: 20201009
  13. VELAGLUCERASE ALFA [Suspect]
     Active Substance: VELAGLUCERASE ALFA
     Dosage: 2600 MILLIGRAM, Q2WEEKS
     Route: 042
     Dates: start: 20200924, end: 20200924
  14. VELAGLUCERASE ALFA [Suspect]
     Active Substance: VELAGLUCERASE ALFA
     Dosage: 2400 MILLIGRAM, Q2WEEKS
     Route: 042
     Dates: start: 20210112, end: 20210112
  15. VELAGLUCERASE ALFA [Suspect]
     Active Substance: VELAGLUCERASE ALFA
     Dosage: 2400 MILLIGRAM, Q2WEEKS
     Route: 042
     Dates: start: 20210223, end: 20210223
  16. VELAGLUCERASE ALFA [Suspect]
     Active Substance: VELAGLUCERASE ALFA
     Dosage: 2400 MILLIGRAM, Q2WEEKS
     Route: 042
     Dates: start: 20210223, end: 20210223
  17. VELAGLUCERASE ALFA [Suspect]
     Active Substance: VELAGLUCERASE ALFA
     Dosage: 2400 MILLIGRAM, Q2WEEKS
     Route: 042
     Dates: start: 20210305
  18. VELAGLUCERASE ALFA [Suspect]
     Active Substance: VELAGLUCERASE ALFA
     Dosage: 2400 INTERNATIONAL UNIT, Q2WEEKS
     Route: 042
     Dates: start: 202103
  19. PFIZER-BIONTECH COVID-19 VACCINE [Suspect]
     Active Substance: TOZINAMERAN
     Indication: COVID-19
     Dosage: UNK
     Route: 065
  20. LARYNGOMEDIN [Concomitant]
     Indication: Cough
     Dosage: UNK
     Route: 065
  21. PENICILLIN [Concomitant]
     Active Substance: PENICILLIN
     Indication: Infection
     Dosage: UNK
     Route: 048
  22. ENOXAPARIN SODIUM [Concomitant]
     Active Substance: ENOXAPARIN SODIUM
     Indication: Thrombosis prophylaxis
     Dosage: UNK
     Route: 065
  23. METAMIZOLE SODIUM [Concomitant]
     Active Substance: METAMIZOLE SODIUM
     Indication: Pain management
     Dosage: 20 GTT DROPS, PRN
     Route: 048
     Dates: start: 20210309

REACTIONS (15)
  - Osteonecrosis [Not Recovered/Not Resolved]
  - Joint dislocation [Unknown]
  - Gait disturbance [Recovered/Resolved]
  - Cough [Recovered/Resolved]
  - Nasopharyngitis [Recovering/Resolving]
  - Sinusitis [Recovering/Resolving]
  - Rhinitis [Recovered/Resolved]
  - Pain [Not Recovered/Not Resolved]
  - COVID-19 immunisation [Unknown]
  - Pyrexia [Recovered/Resolved]
  - Headache [Not Recovered/Not Resolved]
  - COVID-19 [Recovered/Resolved]
  - Decreased appetite [Recovered/Resolved]
  - Abdominal pain upper [Recovered/Resolved]
  - Weight decreased [Recovered/Resolved]

NARRATIVE: CASE EVENT DATE: 20190101
